FAERS Safety Report 23722711 (Version 1)
Quarter: 2024Q2

REPORT INFORMATION
  Report Type: Spontaneous
  Country: US (occurrence: US)
  Receive Date: 20240409
  Receipt Date: 20240409
  Transmission Date: 20240716
  Serious: No
  Sender: FDA-Public Use
  Company Number: US-PFIZER INC-PV202400044677

PATIENT
  Age: 53 Year
  Sex: Female

DRUGS (2)
  1. NURTEC ODT [Interacting]
     Active Substance: RIMEGEPANT SULFATE
     Indication: Migraine
     Dosage: USING THE PILLS SPARINGLY
     Route: 048
  2. EXCEDRIN MIGRAINE [Suspect]
     Active Substance: ACETAMINOPHEN\ASPIRIN\CAFFEINE
     Dosage: UNK

REACTIONS (2)
  - Drug interaction [Unknown]
  - Cardiac disorder [Unknown]
